FAERS Safety Report 15292568 (Version 1)
Quarter: 2018Q3

REPORT INFORMATION
  Report Type: Spontaneous
  Country: US (occurrence: US)
  Receive Date: 20180818
  Receipt Date: 20180818
  Transmission Date: 20181010
  Serious: Yes (Other)
  Sender: FDA-Public Use
  Company Number: US-TEVA-2018-US-943486

PATIENT
  Sex: Male

DRUGS (1)
  1. VALSARTAN W/HYDROCHLOROTHIAZIDE [Suspect]
     Active Substance: HYDROCHLOROTHIAZIDE\VALSARTAN
     Indication: BLOOD PRESSURE MEASUREMENT
     Dosage: DOSE STRENGTH:  320/25MG
     Route: 065
     Dates: start: 1998

REACTIONS (5)
  - Kidney infection [Unknown]
  - Hepatic enzyme increased [Unknown]
  - Cystitis [Unknown]
  - Urinary retention [Unknown]
  - Blood creatinine increased [Recovering/Resolving]

NARRATIVE: CASE EVENT DATE: 201807
